FAERS Safety Report 8032546-1 (Version None)
Quarter: 2011Q4

REPORT INFORMATION
  Report Type: 
  Country: None (occurrence: None)
  Receive Date: 20111228
  Receipt Date: 20111215
  Transmission Date: 20120403
  Serious: Yes (Hospitalization, Disabling)
  Sender: FDA-Public Use
  Company Number: 2011SP029906

PATIENT
  Age: 64 Year
  Sex: Male
  Weight: 68.3 kg

DRUGS (8)
  1. NEORECORMON [Concomitant]
  2. BOCEPREVIR (SCH-503034) [Suspect]
     Indication: HEPATITIS C
     Dosage: 800 MG;TID;PO, 600 MG; TID; PO
     Route: 048
     Dates: start: 20110914
  3. BOCEPREVIR (SCH-503034) [Suspect]
     Indication: HEPATITIS C
     Dosage: 800 MG;TID;PO, 600 MG; TID; PO
     Route: 048
     Dates: start: 20110426, end: 20110913
  4. FERROUS SULFATE TAB [Concomitant]
  5. REBETOL [Suspect]
     Indication: HEPATITIS C
     Dosage: 600 MG; QD; PO, 400 MG; QD; PO
     Route: 048
     Dates: start: 20110329, end: 20110913
  6. REBETOL [Suspect]
     Indication: HEPATITIS C
     Dosage: 600 MG; QD; PO, 400 MG; QD; PO
     Route: 048
     Dates: start: 20110914
  7. VIRAFERONPEG [Suspect]
     Indication: HEPATITIS C
     Dosage: 90 MCG; QW; SC, 80 MCG; QW; SC,
     Route: 058
     Dates: start: 20110329, end: 20110912
  8. VIRAFERONPEG [Suspect]
     Indication: HEPATITIS C
     Dosage: 90 MCG; QW; SC, 80 MCG; QW; SC,
     Route: 058
     Dates: start: 20110913

REACTIONS (5)
  - FOOT FRACTURE [None]
  - HEPATIC NEOPLASM MALIGNANT [None]
  - HEPATIC CIRRHOSIS [None]
  - ANAEMIA [None]
  - FALL [None]
